FAERS Safety Report 18612527 (Version 1)
Quarter: 2020Q4

REPORT INFORMATION
  Report Type: Report from Study
  Country: US (occurrence: US)
  Receive Date: 20201214
  Receipt Date: 20201214
  Transmission Date: 20210114
  Serious: Yes (Hospitalization)
  Sender: FDA-Public Use
  Company Number: US-EXELIXIS-CABO-20034837

PATIENT
  Sex: Male
  Weight: 102.8 kg

DRUGS (16)
  1. CABOMETYX [Suspect]
     Active Substance: CABOZANTINIB S-MALATE
     Dosage: 20 MG, QD
     Dates: start: 20201006
  2. ACETAMINOPHEN. [Concomitant]
     Active Substance: ACETAMINOPHEN
  3. VITAMIN D3 [Concomitant]
     Active Substance: CHOLECALCIFEROL
  4. ULORIC [Concomitant]
     Active Substance: FEBUXOSTAT
  5. UROCIT-K [Concomitant]
     Active Substance: POTASSIUM CITRATE
  6. CABOMETYX [Suspect]
     Active Substance: CABOZANTINIB S-MALATE
     Dosage: 40 MG, QD
     Dates: end: 202010
  7. COENZYME Q10 [Concomitant]
     Active Substance: DIETARY SUPPLEMENT\UBIDECARENONE
  8. LASIX [Concomitant]
     Active Substance: FUROSEMIDE
  9. NORCO [Concomitant]
     Active Substance: ACETAMINOPHEN\HYDROCODONE BITARTRATE
  10. SYNTHROID [Concomitant]
     Active Substance: LEVOTHYROXINE SODIUM
  11. FLINTSTONE VITAMINS W/IRON [Concomitant]
  12. EMLA [Concomitant]
     Active Substance: LIDOCAINE\PRILOCAINE
  13. CABOMETYX [Suspect]
     Active Substance: CABOZANTINIB S-MALATE
     Indication: HEPATOCELLULAR CARCINOMA
     Dosage: 40 MG, QD
     Dates: start: 202006, end: 202008
  14. COREG [Concomitant]
     Active Substance: CARVEDILOL
  15. PEPCID [Concomitant]
     Active Substance: FAMOTIDINE
  16. PROTONIX [Concomitant]
     Active Substance: PANTOPRAZOLE SODIUM

REACTIONS (10)
  - Diabetic foot infection [Recovered/Resolved with Sequelae]
  - Malignant neoplasm progression [Unknown]
  - Wound infection pseudomonas [Unknown]
  - Palmar-plantar erythrodysaesthesia syndrome [Recovered/Resolved]
  - Fatigue [Unknown]
  - Anaesthetic complication cardiac [Unknown]
  - Constipation [Unknown]
  - Abdominal pain [Unknown]
  - Impaired healing [Unknown]
  - Inappropriate schedule of product administration [Unknown]
